FAERS Safety Report 5781013-4 (Version None)
Quarter: 2008Q2

REPORT INFORMATION
  Report Type: 
  Country: None (occurrence: None)
  Receive Date: 20080618
  Receipt Date: 20080514
  Transmission Date: 20081010
  Serious: Yes (Other)
  Sender: FDA-Public Use
  Company Number: 2008015446

PATIENT
  Age: 6 Year
  Sex: Female

DRUGS (1)
  1. LISTERINE SMART RINSE (SODIUM FLUORIDE) [Suspect]
     Dosage: ORAL
     Route: 048
     Dates: start: 20080514, end: 20080514

REACTIONS (2)
  - INCORRECT ROUTE OF DRUG ADMINISTRATION [None]
  - PYREXIA [None]
